FAERS Safety Report 7361528-8 (Version None)
Quarter: 2011Q1

REPORT INFORMATION
  Report Type: 
  Country: None (occurrence: None)
  Receive Date: 20110318
  Receipt Date: 20110314
  Transmission Date: 20110831
  Serious: Yes (Life-Threatening, Other)
  Sender: FDA-Public Use
  Company Number: PHHY2011FR20692

PATIENT
  Sex: Male

DRUGS (4)
  1. GLEEVEC [Suspect]
     Dosage: UNK
     Dates: start: 20100804
  2. GLEEVEC [Suspect]
     Dosage: 400 MG PER DAY
     Dates: start: 20080125, end: 20100420
  3. GLEEVEC [Suspect]
     Indication: CHRONIC MYELOID LEUKAEMIA
     Dosage: 400 MG PER DAY
     Dates: start: 20030801, end: 20071004
  4. HEXAQUINE [Concomitant]
     Indication: MUSCLE SPASMS
     Dosage: 1 DF, QD
     Dates: start: 20060101

REACTIONS (6)
  - PROSTATOMEGALY [None]
  - LEUKAEMIA RECURRENT [None]
  - NEOPLASM MALIGNANT [None]
  - PROSTATIC SPECIFIC ANTIGEN INCREASED [None]
  - BLADDER PAIN [None]
  - PROSTATE CANCER [None]
